FAERS Safety Report 17293481 (Version 1)
Quarter: 2020Q1

REPORT INFORMATION
  Report Type: Spontaneous
  Country: US (occurrence: US)
  Receive Date: 20200102
  Receipt Date: 20200102
  Transmission Date: 20200409
  Serious: No
  Sender: FDA-Public Use
  Company Number: None

PATIENT
  Age: 48 Year
  Sex: Female

DRUGS (3)
  1. MEPRAZOLE [Concomitant]
  2. ALECENSA [Suspect]
     Active Substance: ALECTINIB HYDROCHLORIDE
     Indication: LUNG CARCINOMA CELL TYPE UNSPECIFIED STAGE 0
     Dosage: ?          OTHER FREQUENCY:3 CAPS  2X/DAILY;?
     Route: 048
     Dates: start: 20180203
  3. ONDANSETRON [Concomitant]
     Active Substance: ONDANSETRON

REACTIONS (6)
  - Hypoaesthesia [None]
  - Pain in extremity [None]
  - Nausea [None]
  - Memory impairment [None]
  - Constipation [None]
  - Swelling [None]

NARRATIVE: CASE EVENT DATE: 20200102
